FAERS Safety Report 8892072 (Version 1)
Quarter: 2012Q4

REPORT INFORMATION
  Report Type: Spontaneous
  Country: US (occurrence: None)
  Receive Date: 20121031
  Receipt Date: 20121031
  Transmission Date: 20130627
  Serious: No
  Sender: FDA-Public Use
  Company Number: ADR-2012-01970

PATIENT
  Sex: Male

DRUGS (1)
  1. LIORESAL INTRATHECAL [Suspect]
     Indication: SPASTICITY
     Dosage: 400 MCG/DAY

REACTIONS (3)
  - Infusion site swelling [None]
  - Device breakage [None]
  - Muscle twitching [None]
